FAERS Safety Report 12243189 (Version 1)
Quarter: 2016Q2

REPORT INFORMATION
  Report Type: Spontaneous
  Country: US (occurrence: US)
  Receive Date: 20160406
  Receipt Date: 20160406
  Transmission Date: 20160815
  Serious: No
  Sender: FDA-Public Use
  Company Number: US-SA-2015SA045940

PATIENT
  Sex: Female

DRUGS (2)
  1. ALLEGRA-D [Suspect]
     Active Substance: FEXOFENADINE\PSEUDOEPHEDRINE
     Indication: HEADACHE
     Dosage: TAKEN FROM: YEARS AGO?DOSE AND DAILY DOSE: 60 MG FEX/120 MG PSE
     Route: 048
  2. ALLEGRA-D [Suspect]
     Active Substance: FEXOFENADINE\PSEUDOEPHEDRINE
     Indication: HYPERSENSITIVITY
     Dosage: TAKEN FROM: YEARS AGO?DOSE AND DAILY DOSE: 60 MG FEX/120 MG PSE
     Route: 048

REACTIONS (1)
  - Arthritis [Unknown]
